FAERS Safety Report 9736948 (Version 1)
Quarter: 2013Q4

REPORT INFORMATION
  Report Type: Spontaneous
  Country: IT (occurrence: IT)
  Receive Date: 20131206
  Receipt Date: 20131206
  Transmission Date: 20140711
  Serious: Yes (Disabling)
  Sender: FDA-Public Use
  Company Number: PHHY2013IT141990

PATIENT
  Sex: Female

DRUGS (8)
  1. ZOMETA [Suspect]
     Indication: BREAST CANCER
     Dosage: 1 U, EVERY 21 DAYS
     Route: 041
     Dates: start: 20091201, end: 201203
  2. ZOMETA [Suspect]
     Dosage: 1 U, EVERY 21 DAYS
     Route: 041
     Dates: start: 201208, end: 201209
  3. METFORMIN [Concomitant]
     Dosage: UNK UKN, UNK
  4. KESSAR [Concomitant]
     Dosage: UNK UKN, UNK
     Dates: start: 200912, end: 201203
  5. FEMARA [Concomitant]
     Dosage: UNK UKN, UNK
     Dates: start: 201203
  6. APROVEL [Concomitant]
     Dosage: UNK UKN, UNK
     Dates: start: 1998
  7. DIBASE [Concomitant]
     Dosage: UNK UKN, UNK
  8. GLICLAZIDE [Concomitant]

REACTIONS (5)
  - Osteonecrosis of jaw [Unknown]
  - Abscess [Unknown]
  - Fistula [Unknown]
  - Exposed bone in jaw [Unknown]
  - Swelling [Unknown]
